FAERS Safety Report 4508421-3 (Version None)
Quarter: 2004Q4

REPORT INFORMATION
  Report Type: 
  Country: None (occurrence: None)
  Receive Date: 20041123
  Receipt Date: 20040205
  Transmission Date: 20050328
  Serious: Yes (Hospitalization)
  Sender: FDA-Public Use
  Company Number: US-GLAXOSMITHKLINE-A0496784A

PATIENT
  Sex: Female

DRUGS (3)
  1. WELLBUTRIN SR [Suspect]
     Route: 048
     Dates: start: 20030101
  2. WELLBUTRIN [Suspect]
     Route: 048
     Dates: start: 20030901
  3. LAMICTAL [Suspect]

REACTIONS (6)
  - ABDOMINAL PAIN UPPER [None]
  - ANXIETY [None]
  - HYPOMANIA [None]
  - INSOMNIA [None]
  - PALPITATIONS [None]
  - TREMOR [None]
